FAERS Safety Report 9782963 (Version 1)
Quarter: 2013Q4

REPORT INFORMATION
  Report Type: Spontaneous
  Country: US (occurrence: None)
  Receive Date: 20131223
  Receipt Date: 20131223
  Transmission Date: 20140711
  Serious: Yes (Other)
  Sender: FDA-Public Use
  Company Number: EUS-2011-00770

PATIENT
  Age: 10 Year
  Sex: Male

DRUGS (5)
  1. ERWINASE [Suspect]
     Indication: ACUTE LYMPHOCYTIC LEUKAEMIA
     Dates: start: 20111123, end: 20111125
  2. DEXAMETHASONE (DEXAMETHASONE) (DEXAMETHASONE) [Concomitant]
  3. GABAPENTIN (GABAPENTIN) (GABAPENTIN) [Concomitant]
  4. LORAZEPAM (LORAZEPAM) (LORAZEPAM) [Concomitant]
  5. TRIMETHOPRIM-SULFAMETHOXAZOLE (SULFAMETHOXAZOLE) (TABLET) (SULFAMETHOXAZOLE) [Concomitant]

REACTIONS (7)
  - Decreased appetite [None]
  - Fatigue [None]
  - Peripheral sensory neuropathy [None]
  - Dizziness [None]
  - Nausea [None]
  - Vomiting [None]
  - Hypersensitivity [None]
